FAERS Safety Report 20622076 (Version 1)
Quarter: 2022Q1

REPORT INFORMATION
  Report Type: Spontaneous
  Country: US (occurrence: None)
  Receive Date: 20220322
  Receipt Date: 20220322
  Transmission Date: 20220424
  Serious: Yes (Hospitalization)
  Sender: FDA-Public Use
  Company Number: None

PATIENT
  Age: 75 Year
  Sex: Male

DRUGS (1)
  1. ABIRATERONE [Suspect]
     Active Substance: ABIRATERONE
     Dosage: 250MG DAILY ORAL?
     Route: 048
     Dates: start: 202007

REACTIONS (2)
  - Vomiting [None]
  - Blood potassium decreased [None]

NARRATIVE: CASE EVENT DATE: 20220215
